FAERS Safety Report 6297018-3 (Version None)
Quarter: 2009Q3

REPORT INFORMATION
  Report Type: 
  Country: None (occurrence: None)
  Receive Date: 20090804
  Receipt Date: 20080627
  Transmission Date: 20100115
  Serious: Yes (Hospitalization, Disabling, Other)
  Sender: FDA-Public Use
  Company Number: GB-BAXTER-2006BH014167

PATIENT
  Age: 70 Year
  Sex: Female

DRUGS (5)
  1. CYCLOPHOSPHAMIDE [Suspect]
     Indication: LYMPHOMA
     Dosage: DOSE UNIT:UNKNOWN
     Route: 042
     Dates: start: 20040701, end: 20040801
  2. DOXORUBICIN GENERIC [Suspect]
     Indication: LYMPHOMA
     Route: 065
  3. VINCRISTINE SULFATE GENERIC [Suspect]
     Indication: LYMPHOMA
     Route: 065
  4. PREDNISOLONE [Suspect]
     Indication: LYMPHOMA
     Route: 065
  5. RITUXIMAB [Suspect]
     Indication: LYMPHOMA
     Route: 065

REACTIONS (7)
  - BLADDER FIBROSIS [None]
  - CATHETERISATION VENOUS [None]
  - HAEMATURIA [None]
  - INFECTION [None]
  - MICTURITION DISORDER [None]
  - PAIN [None]
  - RENAL DISORDER [None]
